FAERS Safety Report 8408004-9 (Version None)
Quarter: 2012Q2

REPORT INFORMATION
  Report Type: 
  Country: None (occurrence: None)
  Receive Date: 20120604
  Receipt Date: 20120525
  Transmission Date: 20120825
  Serious: Yes (Hospitalization, Disabling)
  Sender: FDA-Public Use
  Company Number: US-MERCK-1201USA02700

PATIENT
  Age: 77 Year
  Sex: Female
  Weight: 56 kg

DRUGS (8)
  1. BONIVA [Suspect]
     Indication: OSTEOPOROSIS PROPHYLAXIS
     Route: 065
     Dates: start: 20060101, end: 20100301
  2. BONIVA [Suspect]
     Indication: OSTEOPENIA
     Route: 065
     Dates: start: 20060101, end: 20100301
  3. PAMELOR [Concomitant]
     Indication: DEPRESSION
     Route: 065
  4. FOSAMAX [Suspect]
     Route: 048
  5. FOSAMAX [Suspect]
     Indication: OSTEOPOROSIS PROPHYLAXIS
     Route: 048
     Dates: start: 20020101, end: 20060601
  6. FOSAMAX [Suspect]
     Indication: OSTEOPENIA
     Route: 048
     Dates: start: 20020101, end: 20060601
  7. KLONOPIN [Concomitant]
     Indication: ANXIETY
     Route: 065
  8. FOSAMAX [Suspect]
     Route: 048

REACTIONS (15)
  - FALL [None]
  - HYPERTENSIVE ENCEPHALOPATHY [None]
  - HYPERTENSION [None]
  - TRANSIENT ISCHAEMIC ATTACK [None]
  - FIBROCYSTIC BREAST DISEASE [None]
  - INTERVERTEBRAL DISC DEGENERATION [None]
  - HYPOTHYROIDISM [None]
  - DERMAL CYST [None]
  - LOW TURNOVER OSTEOPATHY [None]
  - CHEST PAIN [None]
  - LENTIGO [None]
  - HYPERKERATOSIS [None]
  - BREAST HYPERPLASIA [None]
  - FEMUR FRACTURE [None]
  - VITAMIN D DEFICIENCY [None]
